FAERS Safety Report 9542548 (Version 2)
Quarter: 2014Q1

REPORT INFORMATION
  Report Type: Report from Study
  Country: US (occurrence: US)
  Receive Date: 20130923
  Receipt Date: 20140213
  Transmission Date: 20141002
  Serious: Yes (Disabling)
  Sender: FDA-Public Use
  Company Number: US-SANOFI-AVENTIS-2013SA091486

PATIENT
  Age: 65 Year
  Sex: Male

DRUGS (2)
  1. AUBAGIO [Suspect]
     Indication: MULTIPLE SCLEROSIS RELAPSE
     Route: 065
     Dates: start: 201306
  2. AUBAGIO [Suspect]
     Indication: MULTIPLE SCLEROSIS RELAPSE
     Route: 065

REACTIONS (2)
  - Cerebrovascular accident [Recovering/Resolving]
  - Paraesthesia [Unknown]
